FAERS Safety Report 7725733-0 (Version None)
Quarter: 2011Q3

REPORT INFORMATION
  Report Type: 
  Country: None (occurrence: None)
  Receive Date: 20110902
  Receipt Date: 20110901
  Transmission Date: 20111222
  Serious: Yes (Other)
  Sender: FDA-Public Use
  Company Number: FR-ABBOTT-11P-056-0837877-00

PATIENT
  Sex: Male
  Weight: 67 kg

DRUGS (2)
  1. HUMIRA [Suspect]
     Indication: CROHN'S DISEASE
     Dates: start: 20110416
  2. METHOTREXATE [Suspect]
     Indication: CROHN'S DISEASE
     Dosage: 20 MG 1 IN 1 WEEK
     Route: 030
     Dates: start: 20100501, end: 20110601

REACTIONS (1)
  - CYTOLYTIC HEPATITIS [None]
